FAERS Safety Report 16541699 (Version 2)
Quarter: 2019Q3

REPORT INFORMATION
  Report Type: Spontaneous
  Country: DE (occurrence: DE)
  Receive Date: 20190708
  Receipt Date: 20190723
  Transmission Date: 20191004
  Serious: Yes (Hospitalization)
  Sender: FDA-Public Use
  Company Number: DE-TEVA-2019-DE-1073818

PATIENT
  Age: 57 Year
  Sex: Female
  Weight: 68 kg

DRUGS (4)
  1. TOPIRAMAT [Suspect]
     Active Substance: TOPIRAMATE
     Dosage: 75 MG, WEEKLY INCREASING FROM INITIALLY 25 MG
     Route: 048
     Dates: end: 20190518
  2. TOPIRAMAT [Suspect]
     Active Substance: TOPIRAMATE
     Dosage: 75 MG, WEEKLY INCREASING FROM INITIALLY 25 MG
     Route: 048
     Dates: start: 20190403, end: 201905
  3. IBUPROFEN. [Concomitant]
     Active Substance: IBUPROFEN
  4. RIZATRIPTAN. [Concomitant]
     Active Substance: RIZATRIPTAN

REACTIONS (6)
  - Gait disturbance [Recovered/Resolved]
  - Fatigue [Recovered/Resolved]
  - Dizziness [Recovered/Resolved]
  - Somnolence [Recovered/Resolved]
  - Renal colic [Recovered/Resolved]
  - Feeling drunk [Recovered/Resolved]

NARRATIVE: CASE EVENT DATE: 20190502
